FAERS Safety Report 11747406 (Version 1)
Quarter: 2015Q4

REPORT INFORMATION
  Report Type: Spontaneous
  Country: US (occurrence: US)
  Receive Date: 20151117
  Receipt Date: 20151117
  Transmission Date: 20160304
  Serious: Yes (Hospitalization)
  Sender: FDA-Public Use
  Company Number: US-MALLINCKRODT-T201505274

PATIENT
  Age: 17 Year

DRUGS (1)
  1. OFIRMEV [Suspect]
     Active Substance: ACETAMINOPHEN
     Indication: PRODUCT USED FOR UNKNOWN INDICATION
     Dosage: UNK
     Route: 065

REACTIONS (6)
  - Haemothorax [Recovered/Resolved]
  - Haemodynamic instability [Recovered/Resolved]
  - Cardio-respiratory arrest [Recovered/Resolved]
  - Multi-organ failure [Recovered/Resolved]
  - Overdose [Recovered/Resolved]
  - Superior vena cava perforation [Recovered/Resolved]
